FAERS Safety Report 5312715-1 (Version None)
Quarter: 2007Q2

REPORT INFORMATION
  Report Type: 
  Country: None (occurrence: None)
  Receive Date: 20070430
  Receipt Date: 20070418
  Transmission Date: 20071010
  Serious: Yes (Hospitalization)
  Sender: FDA-Public Use
  Company Number: US-KINGPHARMUSA00001-K200700490

PATIENT

DRUGS (6)
  1. ALTACE [Suspect]
     Indication: HYPERTENSION
     Dosage: 2.5 MG, QD
     Route: 048
     Dates: start: 20061201, end: 20070101
  2. EFFEXOR [Suspect]
     Dosage: 37.5 MG, QD
     Route: 048
     Dates: start: 20061201, end: 20070101
  3. FOSAMAX [Suspect]
     Indication: OSTEOPOROTIC FRACTURE
     Dosage: 70 MG, QW
     Route: 048
     Dates: start: 20061201, end: 20070101
  4. CALCIMAGON-D 3 [Concomitant]
     Dosage: 1 DF, QD
     Route: 048
     Dates: start: 20061201
  5. PANTOZOL                           /01263202/ [Concomitant]
     Dosage: 20 MG, UNK
     Route: 048
     Dates: start: 20061201
  6. DUPHALAC  /00163401/ [Concomitant]
     Dosage: 1 DF, QD
     Route: 048
     Dates: start: 20061201, end: 20070101

REACTIONS (3)
  - LEUKOPENIA [None]
  - LYMPHOPENIA [None]
  - NEUTROPENIA [None]
